FAERS Safety Report 8760787 (Version 2)
Quarter: 2012Q4

REPORT INFORMATION
  Report Type: Report from Study
  Country: JP (occurrence: JP)
  Receive Date: 20120830
  Receipt Date: 20121102
  Transmission Date: 20130627
  Serious: Yes (Other)
  Sender: FDA-Public Use
  Company Number: PHHY2012JP073879

PATIENT
  Age: 51 Year
  Sex: Male
  Weight: 57 kg

DRUGS (12)
  1. AFINITOR [Suspect]
     Indication: PANCREATIC NEUROENDOCRINE TUMOUR
     Dosage: 10 mg/day
     Route: 048
     Dates: start: 20120213, end: 20120317
  2. AFINITOR [Suspect]
     Dosage: 10 mg/day
     Route: 048
     Dates: start: 20120324, end: 20120325
  3. AFINITOR [Suspect]
     Dosage: 5 mg/day
     Route: 048
     Dates: start: 20120423, end: 20120430
  4. AFINITOR [Suspect]
     Dosage: 10 mg/day
     Route: 048
     Dates: start: 20120501, end: 20120627
  5. AFINITOR [Suspect]
     Dosage: 10 mg/day
     Route: 048
     Dates: start: 20120705, end: 20120729
  6. AFINITOR [Suspect]
     Dosage: 10 mg/day
     Route: 048
     Dates: start: 20120806
  7. SANDOSTATIN LAR [Suspect]
     Indication: PANCREATIC NEUROENDOCRINE TUMOUR
     Dosage: 30 mg daily
     Route: 030
     Dates: start: 20120416
  8. CEROCRAL [Concomitant]
     Dosage: 20 mg
     Route: 048
     Dates: end: 20120222
  9. NU-LOTAN [Concomitant]
     Dosage: 25 mg
     Route: 048
     Dates: end: 20120718
  10. MUCOSTA [Concomitant]
     Indication: PROPHYLAXIS
     Route: 048
     Dates: start: 20120409, end: 20120608
  11. TAKEPRON [Concomitant]
     Indication: PROPHYLAXIS
     Dosage: 15 mg
     Route: 048
     Dates: start: 20120409, end: 20120718
  12. PANCRELIPASE [Concomitant]
     Indication: PANCREATIC NEUROENDOCRINE TUMOUR
     Dosage: 450 mg
     Route: 048
     Dates: start: 20120608

REACTIONS (8)
  - Blood creatine phosphokinase increased [Recovering/Resolving]
  - Stomatitis [Recovering/Resolving]
  - Diarrhoea [Recovering/Resolving]
  - Paronychia [Recovering/Resolving]
  - Pruritus [Recovered/Resolved]
  - Fatigue [Recovering/Resolving]
  - Rash [Recovering/Resolving]
  - Injury [Recovered/Resolved]
